FAERS Safety Report 17455669 (Version 1)
Quarter: 2020Q1

REPORT INFORMATION
  Report Type: Spontaneous
  Country: US (occurrence: US)
  Receive Date: 20200212
  Receipt Date: 20200212
  Transmission Date: 20200409
  Serious: Yes (Hospitalization)
  Sender: FDA-Public Use
  Company Number: None

PATIENT
  Age: 42 Year
  Sex: Female

DRUGS (6)
  1. ENBREL [Suspect]
     Active Substance: ETANERCEPT
     Indication: PRODUCT USED FOR UNKNOWN INDICATION
     Route: 058
     Dates: start: 20190402
  2. CITALOPRAM [Concomitant]
     Active Substance: CITALOPRAM HYDROBROMIDE
  3. DEXILANT [Concomitant]
     Active Substance: DEXLANSOPRAZOLE
  4. CELECOXIB CAP [Concomitant]
  5. VITAMIN D [Concomitant]
     Active Substance: VITAMIN D NOS
  6. METHOTREXATE. [Concomitant]
     Active Substance: METHOTREXATE

REACTIONS (2)
  - Surgery [None]
  - Therapy cessation [None]

NARRATIVE: CASE EVENT DATE: 20200118
